FAERS Safety Report 4871845-9 (Version None)
Quarter: 2006Q1

REPORT INFORMATION
  Report Type: 
  Country: None (occurrence: None)
  Receive Date: 20060104
  Receipt Date: 20051230
  Transmission Date: 20060701
  Serious: Yes (Hospitalization)
  Sender: FDA-Public Use
  Company Number: FR-MERCK-0601FRA00007

PATIENT
  Age: 58 Year
  Sex: Male

DRUGS (6)
  1. INDOCIN [Suspect]
     Indication: MIGRAINE
     Route: 048
     Dates: start: 19950101, end: 20051028
  2. INDOCIN [Suspect]
     Route: 054
     Dates: start: 19950101, end: 20051028
  3. SERTRALINE HYDROCHLORIDE [Concomitant]
     Indication: MIGRAINE
     Route: 048
     Dates: start: 20050719, end: 20050803
  4. ATORVASTATIN CALCIUM [Concomitant]
     Indication: HYPERCHOLESTEROLAEMIA
     Route: 048
     Dates: start: 20050415, end: 20050815
  5. PROPRANOLOL HYDROCHLORIDE [Concomitant]
     Indication: MIGRAINE
     Route: 048
     Dates: start: 19950101
  6. HYDROCHLOROTHIAZIDE [Concomitant]
     Indication: NEPHROLITHIASIS
     Route: 048
     Dates: start: 20040101

REACTIONS (2)
  - COLITIS COLLAGENOUS [None]
  - LARGE INTESTINAL ULCER [None]
